FAERS Safety Report 5822977-X (Version None)
Quarter: 2008Q3

REPORT INFORMATION
  Report Type: 
  Country: None (occurrence: None)
  Receive Date: 20080725
  Receipt Date: 20080718
  Transmission Date: 20090109
  Serious: Yes (Other)
  Sender: FDA-Public Use
  Company Number: A0739624A

PATIENT
  Sex: Female

DRUGS (1)
  1. WELLBUTRIN XL [Suspect]
     Indication: DEPRESSION
     Route: 048

REACTIONS (4)
  - CEREBRAL ATROPHY [None]
  - CEREBROSCLEROSIS [None]
  - MEMORY IMPAIRMENT [None]
  - SUICIDAL IDEATION [None]
